FAERS Safety Report 13377785 (Version 5)
Quarter: 2020Q3

REPORT INFORMATION
  Report Type: Spontaneous
  Country: US (occurrence: US)
  Receive Date: 20170328
  Receipt Date: 20200806
  Transmission Date: 20201102
  Serious: Yes (Other)
  Sender: FDA-Public Use
  Company Number: US-BAYER-2017-055933

PATIENT
  Age: 23 Year
  Sex: Female
  Weight: 104.5 kg

DRUGS (2)
  1. MIRENA [Suspect]
     Active Substance: LEVONORGESTREL
     Indication: MENORRHAGIA
  2. MIRENA [Suspect]
     Active Substance: LEVONORGESTREL
     Indication: CONTRACEPTION
     Dosage: 20 MCG/24HR, CONT
     Route: 015
     Dates: start: 20120827, end: 20170317

REACTIONS (6)
  - Embedded device [Recovering/Resolving]
  - Wrong technique in product usage process [None]
  - Device difficult to use [None]
  - Complication of device removal [Recovering/Resolving]
  - Device use issue [None]
  - Device breakage [Recovering/Resolving]

NARRATIVE: CASE EVENT DATE: 2017
